FAERS Safety Report 4345033-9 (Version None)
Quarter: 2004Q2

REPORT INFORMATION
  Report Type: 
  Country: None (occurrence: None)
  Receive Date: 20040420
  Receipt Date: 20040405
  Transmission Date: 20050107
  Serious: Yes (Hospitalization)
  Sender: FDA-Public Use
  Company Number: 2004SE01944

PATIENT
  Age: 25 Year
  Sex: Male

DRUGS (3)
  1. SEROQUEL [Suspect]
     Indication: PSYCHOTIC DISORDER
     Dosage: 600 MG DAILY PO
     Route: 048
     Dates: start: 20040103, end: 20040326
  2. TENOX [Concomitant]
  3. CIPRALEX [Concomitant]

REACTIONS (1)
  - NEUTROPENIA [None]
